FAERS Safety Report 22631352 (Version 1)
Quarter: 2023Q2

REPORT INFORMATION
  Report Type: Report from Study
  Country: CL (occurrence: CL)
  Receive Date: 20230623
  Receipt Date: 20230623
  Transmission Date: 20230722
  Serious: Yes (Hospitalization)
  Sender: FDA-Public Use
  Company Number: CL-002147023-NVSC2023CL139697

PATIENT
  Age: 17 Year
  Sex: Male
  Weight: 58 kg

DRUGS (1)
  1. OMNITROPE [Suspect]
     Active Substance: SOMATROPIN
     Indication: Hypopituitarism
     Dosage: 5.3 MG / 10 MG / 1.5 ML / 5.8 IU, QD
     Route: 058

REACTIONS (4)
  - Cyst [Unknown]
  - Back disorder [Unknown]
  - Device issue [Unknown]
  - Overdose [Unknown]

NARRATIVE: CASE EVENT DATE: 20230501
